FAERS Safety Report 13526151 (Version 1)
Quarter: 2017Q2

REPORT INFORMATION
  Report Type: Spontaneous
  Country: US (occurrence: US)
  Receive Date: 20170509
  Receipt Date: 20170509
  Transmission Date: 20170830
  Serious: Yes (Other)
  Sender: FDA-Public Use
  Company Number: US-SHIRE-US201710102

PATIENT
  Sex: Female

DRUGS (2)
  1. XIIDRA [Suspect]
     Active Substance: LIFITEGRAST
     Indication: DRY EYE
     Dosage: 1 GTT IN EACH EYE, 2X/DAY:BID
     Route: 047
     Dates: start: 20170418, end: 201704
  2. EPIPEN [Concomitant]
     Active Substance: EPINEPHRINE
     Indication: PRODUCT USED FOR UNKNOWN INDICATION
     Dosage: UNK, UNKNOWN
     Route: 065

REACTIONS (5)
  - Corneal erosion [Not Recovered/Not Resolved]
  - Hypersensitivity [Unknown]
  - Visual impairment [Not Recovered/Not Resolved]
  - Adverse event [Not Recovered/Not Resolved]
  - Angiogram retina abnormal [Not Recovered/Not Resolved]

NARRATIVE: CASE EVENT DATE: 201704
